FAERS Safety Report 8154187-8 (Version None)
Quarter: 2012Q1

REPORT INFORMATION
  Report Type: 
  Country: None (occurrence: None)
  Receive Date: 20120215
  Receipt Date: 20120131
  Transmission Date: 20120608
  Serious: Yes (Hospitalization)
  Sender: FDA-Public Use
  Company Number: JPI-P-019628

PATIENT
  Age: 69 Year
  Sex: Male
  Weight: 64.8644 kg

DRUGS (3)
  1. MULTIPLE UNSPECIFIED MEDICATIONS [Concomitant]
  2. XYREM [Suspect]
     Indication: NARCOLEPSY
     Dosage: 1 GM (0.5 GM, 2 IN 1 D), ORAL, (UNSPECIFIED TITRATING DOSES), ORAL, 6 GM (3 GM, 2 IN 1 D) , ORAL
     Route: 048
     Dates: start: 20090108
  3. XYREM [Suspect]
     Indication: NARCOLEPSY
     Dosage: 1 GM (0.5 GM, 2 IN 1 D), ORAL, (UNSPECIFIED TITRATING DOSES), ORAL, 6 GM (3 GM, 2 IN 1 D) , ORAL
     Route: 048
     Dates: start: 20081015

REACTIONS (2)
  - DIARRHOEA [None]
  - ARTHROPATHY [None]
